FAERS Safety Report 15404990 (Version 2)
Quarter: 2018Q4

REPORT INFORMATION
  Report Type: Spontaneous
  Country: IT (occurrence: IT)
  Receive Date: 20180920
  Receipt Date: 20181016
  Transmission Date: 20190204
  Serious: Yes (Other)
  Sender: FDA-Public Use
  Company Number: IT-BEH-2018094909

PATIENT
  Age: 37 Year
  Sex: Female

DRUGS (1)
  1. ANTI-D IMMUNOGLOBULIN (NC) [Suspect]
     Active Substance: HUMAN RHO(D) IMMUNE GLOBULIN
     Indication: PROPHYLAXIS AGAINST RH ISOIMMUNISATION
     Dosage: 300 ?G, TOT
     Route: 065

REACTIONS (2)
  - Drug ineffective [Unknown]
  - Rhesus incompatibility [Unknown]
